FAERS Safety Report 19153764 (Version 2)
Quarter: 2021Q2

REPORT INFORMATION
  Report Type: Spontaneous
  Country: IT (occurrence: IT)
  Receive Date: 20210419
  Receipt Date: 20210616
  Transmission Date: 20210717
  Serious: Yes (Hospitalization, Other)
  Sender: FDA-Public Use
  Company Number: IT-MYLANLABS-2021M1022685

PATIENT
  Age: 5 Day
  Sex: Female

DRUGS (14)
  1. AMIODARONE [Suspect]
     Active Substance: AMIODARONE
     Indication: ATRIAL TACHYCARDIA
     Dosage: 10 MILLIGRAM/KILOGRAM, QD (10 MG/KG, QD)
     Route: 042
  2. FLECAINIDE [Suspect]
     Active Substance: FLECAINIDE
     Indication: SUPRAVENTRICULAR TACHYARRHYTHMIA
     Dosage: 50 MILLIGRAM/SQ. METER, QD (50 MG/M2/DAY, TWICE A DAY)
     Route: 065
  3. DIGOXIN. [Suspect]
     Active Substance: DIGOXIN
     Indication: ATRIAL TACHYCARDIA
     Dosage: UNK
     Route: 063
  4. DIGOXIN. [Suspect]
     Active Substance: DIGOXIN
     Dosage: 10 MICROGRAM/KILOGRAM
     Route: 048
  5. SOTALOL. [Suspect]
     Active Substance: SOTALOL
     Indication: ATRIAL TACHYCARDIA
     Dosage: 3 MILLIGRAM/KILOGRAM, QD (3 MG THRICE A DAY)
     Route: 065
  6. AMIODARONE [Suspect]
     Active Substance: AMIODARONE
     Dosage: 5 MILLIGRAM/KILOGRAM, QD (5 MG/KG, QD LOADING DOSE)
     Route: 042
  7. ADENOSINE. [Suspect]
     Active Substance: ADENOSINE
     Indication: ATRIAL TACHYCARDIA
     Dosage: 0.2 MILLIGRAM/KILOGRAM (0.2 MG/KG)
     Route: 065
  8. DIGOXIN. [Suspect]
     Active Substance: DIGOXIN
     Indication: TACHYCARDIA
     Dosage: 10 DOSAGE FORM (10 MCG/KG  )
  9. AMIODARONE [Suspect]
     Active Substance: AMIODARONE
     Dosage: 18 MILLIGRAM/KILOGRAM, QD (13.3 MCG/KG/MIN)
     Route: 042
  10. FLECAINIDE [Suspect]
     Active Substance: FLECAINIDE
     Indication: PROPHYLAXIS
     Dosage: UNK
     Route: 063
  11. FLECAINIDE [Concomitant]
     Active Substance: FLECAINIDE
     Indication: ATRIAL TACHYCARDIA
     Dosage: 100 MILLIGRAM/SQ. METER, QD (9 MG TWICE A DAY)
     Route: 048
  12. SOTALOL. [Suspect]
     Active Substance: SOTALOL
     Dosage: 6 MILLIGRAM/KILOGRAM, QD (6 MG THRICE A DAY)
     Route: 065
  13. PROPANOLOL                         /00030001/ [Suspect]
     Active Substance: PROPRANOLOL HYDROCHLORIDE
     Indication: ATRIAL TACHYCARDIA
     Dosage: 2.5 MILLIGRAM/KILOGRAM, QD (2.5 MG/KG, QD)
     Route: 065
  14. FLECAINIDE [Concomitant]
     Active Substance: FLECAINIDE
     Dosage: 120 MILLIGRAM/SQ. METER, QD (8 MG THRICE A DAY)
     Route: 048

REACTIONS (6)
  - Premature baby [Unknown]
  - Low birth weight baby [Unknown]
  - Foetal exposure during pregnancy [Unknown]
  - Tachycardia [Recovered/Resolved]
  - Drug ineffective [Unknown]
  - Incorrect dose administered [Unknown]
